FAERS Safety Report 8767081 (Version 2)
Quarter: 2012Q4

REPORT INFORMATION
  Report Type: 
  Country: NZ (occurrence: NZ)
  Receive Date: 20120830
  Receipt Date: 20121023
  Transmission Date: 20130627
  Serious: No
  Sender: FDA-Public Use
  Company Number: NZ-ELI_LILLY_AND_COMPANY-NZ201208007751

PATIENT
  Age: 16 Year
  Sex: Male
  Weight: 70 kg

DRUGS (3)
  1. OLANZAPINE [Suspect]
     Indication: SCHIZOPHRENIA
     Dosage: UNK, unknown
     Route: 048
  2. OLANZAPINE [Suspect]
     Dosage: 5 mg, qd
     Route: 048
     Dates: start: 20120902, end: 20120910
  3. RISPERDAL CONSTA [Concomitant]
     Dosage: 50 mg, UNK

REACTIONS (1)
  - Neutropenia [Recovering/Resolving]
